FAERS Safety Report 7618454-6 (Version None)
Quarter: 2011Q3

REPORT INFORMATION
  Report Type: 
  Country: None (occurrence: None)
  Receive Date: 20110718
  Receipt Date: 20110705
  Transmission Date: 20111222
  Serious: Yes (Disabling)
  Sender: FDA-Public Use
  Company Number: US-MERCK-1106USA02708

PATIENT
  Sex: Male

DRUGS (2)
  1. ZOCOR [Suspect]
     Route: 048
     Dates: start: 20060101, end: 20110101
  2. ZOCOR [Suspect]
     Route: 065
     Dates: start: 20110101

REACTIONS (13)
  - RHINITIS [None]
  - PLASMA CELL DISORDER [None]
  - PAIN IN EXTREMITY [None]
  - MYALGIA [None]
  - HAEMATURIA [None]
  - DEPRESSION [None]
  - HYPERTENSION [None]
  - RENAL FAILURE CHRONIC [None]
  - ERECTILE DYSFUNCTION [None]
  - ARTHRALGIA [None]
  - ASTHMA [None]
  - HYPERLIPIDAEMIA [None]
  - BUNION [None]
